FAERS Safety Report 5887363-5 (Version None)
Quarter: 2008Q3

REPORT INFORMATION
  Report Type: 
  Country: None (occurrence: None)
  Receive Date: 20080917
  Receipt Date: 20080917
  Transmission Date: 20090109
  Serious: No
  Sender: FDA-Public Use
  Company Number: None

PATIENT
  Age: 49 Year
  Sex: Female
  Weight: 163.2949 kg

DRUGS (1)
  1. ZYFLO [Suspect]
     Indication: ASTHMA
     Dosage: 2 600MG TABS BID ORAL TOOK 2 TIMES
     Route: 048
     Dates: start: 20080708, end: 20080709

REACTIONS (2)
  - ORAL DISORDER [None]
  - PRURITUS GENERALISED [None]
